FAERS Safety Report 4423730-4 (Version None)
Quarter: 2004Q3

REPORT INFORMATION
  Report Type: 
  Country: None (occurrence: None)
  Receive Date: 20040811
  Receipt Date: 20040805
  Transmission Date: 20050211
  Serious: Yes (Death, Other)
  Sender: FDA-Public Use
  Company Number: GB-MERCK-0408GBR00062

PATIENT
  Age: 92 Year
  Sex: Female

DRUGS (6)
  1. ATENOLOL [Concomitant]
     Route: 048
  2. CODEINE [Concomitant]
     Indication: PAIN
     Route: 048
  3. FUROSEMIDE [Concomitant]
     Route: 048
  4. HYDROXYZINE HYDROCHLORIDE [Concomitant]
     Route: 065
     Dates: start: 20040726
  5. COZAAR [Suspect]
     Indication: HYPERTENSION
     Route: 048
     Dates: end: 20040728
  6. ZOPICLONE [Concomitant]
     Route: 048

REACTIONS (2)
  - ANGIONEUROTIC OEDEMA [None]
  - PNEUMONIA ASPIRATION [None]
